FAERS Safety Report 17361792 (Version 4)
Quarter: 2021Q4

REPORT INFORMATION
  Report Type: Report from Study
  Country: CN (occurrence: CN)
  Receive Date: 20200203
  Receipt Date: 20211203
  Transmission Date: 20220303
  Serious: Yes (Hospitalization)
  Sender: FDA-Public Use
  Company Number: CN-BAYER-2019-210488

PATIENT
  Age: 34 Year
  Sex: Male
  Weight: 75 kg

DRUGS (11)
  1. RIVAROXABAN [Suspect]
     Active Substance: RIVAROXABAN
     Indication: Pulmonary embolism
     Dosage: 10 MG, BID
     Route: 048
     Dates: start: 20190717, end: 20190815
  2. RIVAROXABAN [Suspect]
     Active Substance: RIVAROXABAN
     Dosage: 10 MG, QD
     Route: 048
     Dates: start: 20190816, end: 20191201
  3. GLUTATHIONE [Concomitant]
     Active Substance: GLUTATHIONE
     Indication: Transaminases increased
     Dosage: 0.4 G, TID
     Route: 048
     Dates: start: 20190824, end: 20190830
  4. GLUTATHIONE [Concomitant]
     Active Substance: GLUTATHIONE
     Indication: Transaminases increased
     Dosage: 0.4 G, TID
     Route: 048
  5. EBASTINE [Concomitant]
     Active Substance: EBASTINE
     Indication: Urticaria
     Dosage: 20 MG,QN
     Route: 048
     Dates: start: 20191120
  6. EBASTINE [Concomitant]
     Active Substance: EBASTINE
     Indication: Urticaria
     Dosage: 20 MG, QN
     Route: 048
     Dates: start: 20191202
  7. METHYLPREDNISOLONE [Concomitant]
     Active Substance: METHYLPREDNISOLONE
     Indication: Urticaria
     Dosage: 4 MG, QD
     Route: 048
     Dates: start: 20191120
  8. METHYLPREDNISOLONE [Concomitant]
     Active Substance: METHYLPREDNISOLONE
     Indication: Urticaria
     Dosage: 4 MG, QD
     Route: 048
     Dates: start: 20191202
  9. LEVOCETIRIZINE DIHYDROCHLORIDE [Concomitant]
     Active Substance: LEVOCETIRIZINE DIHYDROCHLORIDE
     Indication: Urticaria
     Dosage: 5 MG, QD
     Route: 048
     Dates: start: 20191120
  10. LEVOCETIRIZINE DIHYDROCHLORIDE [Concomitant]
     Active Substance: LEVOCETIRIZINE DIHYDROCHLORIDE
     Indication: Urticaria
     Dosage: 5 MG, QD
     Dates: start: 20191202
  11. GLUTATHIONE [Concomitant]
     Active Substance: GLUTATHIONE
     Dosage: 1.2 G, QD
     Dates: start: 20190822, end: 20190828

REACTIONS (2)
  - Pulmonary embolism [Recovering/Resolving]
  - Haematuria [Recovered/Resolved]

NARRATIVE: CASE EVENT DATE: 20190820
